FAERS Safety Report 7779283-6 (Version None)
Quarter: 2011Q3

REPORT INFORMATION
  Report Type: 
  Country: None (occurrence: None)
  Receive Date: 20110926
  Receipt Date: 20110916
  Transmission Date: 20111222
  Serious: Yes (Hospitalization)
  Sender: FDA-Public Use
  Company Number: SE-ASTRAZENECA-2011SE55859

PATIENT
  Age: 12134 Day
  Sex: Female

DRUGS (10)
  1. DESLORATADINE [Concomitant]
  2. ATENOLOL [Concomitant]
     Route: 048
  3. PROPAVAN [Concomitant]
     Route: 048
  4. LAMOTRIGINE [Concomitant]
  5. VENLAFAXINE [Concomitant]
  6. OMEPRAZOLE [Concomitant]
     Route: 048
  7. SEROQUEL [Suspect]
     Indication: BIPOLAR I DISORDER
     Route: 048
     Dates: start: 20110101
  8. ZOPIKLON [Concomitant]
  9. ESIDRIX [Concomitant]
     Route: 048
  10. OXAZEPAM [Concomitant]
     Route: 048

REACTIONS (6)
  - ATAXIA [None]
  - SYNCOPE [None]
  - SENSORY DISTURBANCE [None]
  - FATIGUE [None]
  - DYSARTHRIA [None]
  - DIZZINESS [None]
